FAERS Safety Report 7201987-4 (Version None)
Quarter: 2010Q4

REPORT INFORMATION
  Report Type: 
  Country: None (occurrence: None)
  Receive Date: 20101229
  Receipt Date: 20101221
  Transmission Date: 20110411
  Serious: Yes (Hospitalization)
  Sender: FDA-Public Use
  Company Number: JP-ABBOTT-10P-087-0693605-00

PATIENT
  Age: 86 Year
  Sex: Male

DRUGS (2)
  1. LUPRON DEPOT [Suspect]
     Indication: PROSTATE CANCER STAGE II
     Route: 058
     Dates: start: 20071116, end: 20080207
  2. CASODEX [Suspect]
     Indication: PROSTATE CANCER STAGE II
     Route: 048
     Dates: start: 20070316

REACTIONS (4)
  - CARDIAC FAILURE [None]
  - INJECTION SITE ERYTHEMA [None]
  - INJECTION SITE INDURATION [None]
  - PYREXIA [None]
